FAERS Safety Report 4304280-2 (Version None)
Quarter: 2004Q1

REPORT INFORMATION
  Report Type: 
  Country: None (occurrence: None)
  Receive Date: 20040224
  Receipt Date: 20040213
  Transmission Date: 20041129
  Serious: Yes (Death)
  Sender: FDA-Public Use
  Company Number: USA-2003-0007228

PATIENT
  Age: 70 Year
  Sex: Male
  Weight: 69.4 kg

DRUGS (2)
  1. OXYCODONE HCL [Suspect]
  2. LIDOCAINE [Suspect]

REACTIONS (13)
  - ANEURYSM [None]
  - ARTERIOSCLEROSIS [None]
  - BRONCHOPNEUMONIA [None]
  - CARDIAC FAILURE CONGESTIVE [None]
  - CORONARY ARTERY DISEASE [None]
  - CYSTITIS HAEMORRHAGIC [None]
  - DRUG SCREEN POSITIVE [None]
  - EMPHYSEMA [None]
  - ILIAC VEIN OCCLUSION [None]
  - LIVER DISORDER [None]
  - MYOCARDIAL FIBROSIS [None]
  - NEPHROSCLEROSIS [None]
  - RENAL CYST [None]
